FAERS Safety Report 8914142 (Version 11)
Quarter: 2014Q4

REPORT INFORMATION
  Report Type: Spontaneous
  Country: AU (occurrence: AU)
  Receive Date: 20121119
  Receipt Date: 20141031
  Transmission Date: 20150529
  Serious: Yes (Other)
  Sender: FDA-Public Use
  Company Number: AU-AMGEN-AUSSP2012072550

PATIENT
  Age: 52 Year
  Sex: Male

DRUGS (5)
  1. IMMUNOGLOBULIN                     /00025201/ [Concomitant]
     Active Substance: HUMAN IMMUNOGLOBULIN G
     Route: 042
  2. CYCLOPHOSPHAMIDE. [Concomitant]
     Active Substance: CYCLOPHOSPHAMIDE
  3. RITUXIMAB [Concomitant]
     Active Substance: RITUXIMAB
  4. ARANESP [Suspect]
     Active Substance: DARBEPOETIN ALFA
     Indication: NEPHROGENIC ANAEMIA
     Dosage: UNK
     Route: 058
     Dates: start: 2010, end: 20120926
  5. MYCOPHENOLATE [Concomitant]
     Active Substance: MYCOPHENOLIC ACID

REACTIONS (12)
  - Fluid overload [Unknown]
  - Diabetes mellitus [Unknown]
  - Peritoneal dialysis complication [Unknown]
  - Drug ineffective [Unknown]
  - Neutralising antibodies positive [Unknown]
  - Haemoglobin decreased [Unknown]
  - Adenoviral haemorrhagic cystitis [Unknown]
  - Transfusion related complication [Unknown]
  - Iron overload [Unknown]
  - Anti-erythropoietin antibody positive [Unknown]
  - Renal failure [Unknown]
  - Aplasia pure red cell [Unknown]

NARRATIVE: CASE EVENT DATE: 20121004
